FAERS Safety Report 9148796 (Version 1)
Quarter: 2013Q1

REPORT INFORMATION
  Report Type: Spontaneous
  Country: US (occurrence: None)
  Receive Date: 20130227
  Receipt Date: 20130227
  Transmission Date: 20140127
  Serious: Yes (Other)
  Sender: FDA-Public Use
  Company Number: None

PATIENT
  Sex: Male
  Weight: 49.9 kg

DRUGS (2)
  1. SULFAMETHOXAZOLE TRIMETHOPRIM [Suspect]
     Indication: ACNE
     Dosage: ONE TABLET TWICE DAILY PO
     Route: 048
     Dates: start: 20120918, end: 20120928
  2. SULFAMETHOXAZOLE TRIMETHOPRIM [Suspect]
     Dosage: ONE TABLET TWICE DAILY PO
     Route: 048
     Dates: start: 20130224, end: 20130224

REACTIONS (11)
  - Pyrexia [None]
  - Ocular hyperaemia [None]
  - Fatigue [None]
  - Decreased appetite [None]
  - Nausea [None]
  - Vomiting [None]
  - Chills [None]
  - Pain [None]
  - Muscle spasms [None]
  - Photophobia [None]
  - Agranulocytosis [None]
